FAERS Safety Report 7358774-6 (Version None)
Quarter: 2011Q1

REPORT INFORMATION
  Report Type: 
  Country: None (occurrence: None)
  Receive Date: 20110317
  Receipt Date: 20110315
  Transmission Date: 20110831
  Serious: Yes (Other)
  Sender: FDA-Public Use
  Company Number: A0918309A

PATIENT
  Age: 47 Year
  Sex: Male

DRUGS (4)
  1. PROMACTA [Suspect]
     Indication: IDIOPATHIC THROMBOCYTOPENIC PURPURA
     Dosage: 65MG PER DAY
     Route: 048
     Dates: start: 20100301
  2. ANTIBIOTICS [Concomitant]
  3. COUGH SYRUP WITH CODEINE [Concomitant]
  4. ANTIHISTAMINE [Concomitant]

REACTIONS (7)
  - SEXUAL DYSFUNCTION [None]
  - PLATELET COUNT DECREASED [None]
  - ERECTILE DYSFUNCTION [None]
  - PNEUMONIA [None]
  - DRUG INEFFECTIVE [None]
  - LIBIDO DECREASED [None]
  - MALAISE [None]
